FAERS Safety Report 18701853 (Version 1)
Quarter: 2021Q1

REPORT INFORMATION
  Report Type: Spontaneous
  Country: FR (occurrence: FR)
  Receive Date: 20210105
  Receipt Date: 20210105
  Transmission Date: 20210419
  Serious: Yes (Hospitalization, Other)
  Sender: FDA-Public Use
  Company Number: FR-CURIUM-2020000526

PATIENT
  Age: 57 Year
  Sex: Male
  Weight: 84 kg

DRUGS (3)
  1. PULMOCIS [Suspect]
     Active Substance: TECHNETIUM TC-99M ALBUMIN AGGREGATED
     Indication: VENTILATION/PERFUSION SCAN
     Route: 042
     Dates: start: 20201229, end: 20201229
  2. TEKCIS (SODIUM PERTECHNETATE (99M TC) [Suspect]
     Active Substance: TECHNETIUM TC-99M SODIUM PERTECHNETATE
     Indication: VENTILATION/PERFUSION SCAN
     Route: 042
     Dates: start: 20201223, end: 20201223
  3. PULMOCIS [Suspect]
     Active Substance: TECHNETIUM TC-99M ALBUMIN AGGREGATED
     Indication: VENTILATION/PERFUSION SCAN
     Route: 042
     Dates: start: 20201223, end: 20201223

REACTIONS (2)
  - Radioisotope scan abnormal [Not Recovered/Not Resolved]
  - Pulmonary embolism [Recovered/Resolved]

NARRATIVE: CASE EVENT DATE: 20201223
